FAERS Safety Report 18954624 (Version 1)
Quarter: 2021Q1

REPORT INFORMATION
  Report Type: Spontaneous
  Country: US (occurrence: US)
  Receive Date: 20210301
  Receipt Date: 20210301
  Transmission Date: 20210420
  Serious: No
  Sender: FDA-Public Use
  Company Number: US-TAKEDA-2021TUS010598

PATIENT
  Sex: Male
  Weight: 68 kg

DRUGS (1)
  1. VPRIV [Suspect]
     Active Substance: VELAGLUCERASE ALFA
     Indication: GAUCHER^S DISEASE
     Dosage: 4400 INTERNATIONAL UNIT, Q2WEEKS
     Route: 051

REACTIONS (2)
  - No adverse event [Unknown]
  - Product dose omission issue [Unknown]
